FAERS Safety Report 6631090-3 (Version None)
Quarter: 2010Q1

REPORT INFORMATION
  Report Type: 
  Country: None (occurrence: None)
  Receive Date: 20100309
  Receipt Date: 20100223
  Transmission Date: 20100710
  Serious: Yes (Hospitalization)
  Sender: FDA-Public Use
  Company Number: 1-21739629

PATIENT
  Age: 38 Year
  Sex: Female

DRUGS (4)
  1. MINOCYCLINE (STRENGTH AND MANUFACTURER NOT REPORTED) [Suspect]
     Indication: ACNE
  2. MONTELUKAST SODIUM [Concomitant]
  3. QUINAPRIL [Concomitant]
  4. HYDROCHLOROTHIAZIDE [Concomitant]

REACTIONS (14)
  - ALANINE AMINOTRANSFERASE INCREASED [None]
  - ASPARTATE AMINOTRANSFERASE INCREASED [None]
  - CARDIAC FAILURE [None]
  - DRUG RASH WITH EOSINOPHILIA AND SYSTEMIC SYMPTOMS [None]
  - DYSPNOEA AT REST [None]
  - EJECTION FRACTION DECREASED [None]
  - HAEMATURIA [None]
  - HEART RATE INCREASED [None]
  - MUSCLE NECROSIS [None]
  - MYOCARDITIS [None]
  - PERIORBITAL OEDEMA [None]
  - THYROXINE FREE INCREASED [None]
  - TRI-IODOTHYRONINE FREE INCREASED [None]
  - TYPE 2 DIABETES MELLITUS [None]
